FAERS Safety Report 14782666 (Version 1)
Quarter: 2018Q2

REPORT INFORMATION
  Report Type: Spontaneous
  Country: US (occurrence: US)
  Receive Date: 20180420
  Receipt Date: 20180420
  Transmission Date: 20180711
  Serious: No
  Sender: FDA-Public Use
  Company Number: US-ASTRAZENECA-2018SE45750

PATIENT
  Sex: Male

DRUGS (2)
  1. CRESTOR [Suspect]
     Active Substance: ROSUVASTATIN CALCIUM
     Route: 048
  2. NIACIN. [Concomitant]
     Active Substance: NIACIN

REACTIONS (4)
  - Poor peripheral circulation [Unknown]
  - Pain in extremity [Unknown]
  - Pruritus [Unknown]
  - Arterial disorder [Unknown]
